FAERS Safety Report 10932584 (Version 1)
Quarter: 2015Q1

REPORT INFORMATION
  Report Type: Spontaneous
  Country: US (occurrence: None)
  Receive Date: 20150318
  Receipt Date: 20150318
  Transmission Date: 20150721
  Serious: Yes (Hospitalization)
  Sender: FDA-Public Use
  Company Number: 2015ST000040

PATIENT
  Age: 79 Year
  Sex: Male
  Weight: 157 kg

DRUGS (3)
  1. UCERIS [Suspect]
     Active Substance: BUDESONIDE
     Indication: COLITIS ULCERATIVE
     Route: 048
     Dates: start: 201402
  2. MESALAMINE. [Concomitant]
     Active Substance: MESALAMINE
  3. PREDNISONE (PREDNISONE) [Suspect]
     Active Substance: PREDNISONE
     Indication: COLITIS ULCERATIVE
     Dates: start: 20150212, end: 20150213

REACTIONS (5)
  - Pneumonia [None]
  - Immunodeficiency [None]
  - Pyrexia [None]
  - Influenza [None]
  - Urinary tract infection [None]

NARRATIVE: CASE EVENT DATE: 20150214
